FAERS Safety Report 8282629-6 (Version None)
Quarter: 2012Q2

REPORT INFORMATION
  Report Type: 
  Country: None (occurrence: None)
  Receive Date: 20120413
  Receipt Date: 20120413
  Transmission Date: 20120825
  Serious: No
  Sender: FDA-Public Use
  Company Number: US-PFIZER INC-2012073827

PATIENT
  Age: 85 Year
  Sex: Female

DRUGS (4)
  1. RESTORIL [Concomitant]
  2. TRAMADOL [Concomitant]
  3. TOVIAZ [Suspect]
     Dosage: UNK
  4. ATENOLOL [Concomitant]

REACTIONS (1)
  - OEDEMA PERIPHERAL [None]
